FAERS Safety Report 4620419-3 (Version None)
Quarter: 2005Q1

REPORT INFORMATION
  Report Type: 
  Country: None (occurrence: None)
  Receive Date: 20050324
  Receipt Date: 20050308
  Transmission Date: 20050727
  Serious: Yes (Hospitalization)
  Sender: FDA-Public Use
  Company Number: USA050290432

PATIENT
  Age: 53 Year
  Sex: Male
  Weight: 112 kg

DRUGS (11)
  1. CYMBALTA [Suspect]
     Indication: NEUROPATHIC PAIN
     Dosage: 60 MG DAY
     Dates: start: 20041101, end: 20041122
  2. TRAZODONE HCL [Concomitant]
  3. CLONIDINE [Concomitant]
  4. CELEXA [Concomitant]
  5. CLONAZEPAM [Concomitant]
  6. GEMFIBROZIL [Concomitant]
  7. DEPAKOTE [Concomitant]
  8. ACETAMINOPHEN PM [Concomitant]
  9. ACETAMINOPHEN [Concomitant]
  10. MIRALAX [Concomitant]
  11. MS CONTIN [Concomitant]

REACTIONS (9)
  - ARTHRALGIA [None]
  - ARTHRITIS [None]
  - CONDITION AGGRAVATED [None]
  - CUTANEOUS VASCULITIS [None]
  - DIABETES MELLITUS NON-INSULIN-DEPENDENT [None]
  - DRUG HYPERSENSITIVITY [None]
  - PURPURA [None]
  - RED BLOOD CELL SEDIMENTATION RATE INCREASED [None]
  - TENDON DISORDER [None]
